FAERS Safety Report 11118549 (Version 1)
Quarter: 2015Q2

REPORT INFORMATION
  Report Type: Spontaneous
  Country: US (occurrence: None)
  Receive Date: 20150515
  Receipt Date: 20150515
  Transmission Date: 20150821
  Serious: Yes (Hospitalization)
  Sender: FDA-Public Use
  Company Number: None

PATIENT
  Age: 53 Year
  Sex: Male
  Weight: 57 kg

DRUGS (1)
  1. BLINATUMOMAB 12.5 MCG/ML KIT AMGEN [Suspect]
     Active Substance: BLINATUMOMAB
     Indication: ACUTE LYMPHOCYTIC LEUKAEMIA RECURRENT
     Route: 042
     Dates: start: 20150307, end: 20150316

REACTIONS (5)
  - Neurotoxicity [None]
  - Aphasia [None]
  - Gait disturbance [None]
  - Neurological symptom [None]
  - Intention tremor [None]

NARRATIVE: CASE EVENT DATE: 20150308
